FAERS Safety Report 15458278 (Version 2)
Quarter: 2019Q2

REPORT INFORMATION
  Report Type: Report from Study
  Country: None (occurrence: RO)
  Receive Date: 20181003
  Receipt Date: 20190401
  Transmission Date: 20190711
  Serious: Yes (Hospitalization)
  Sender: FDA-Public Use
  Company Number: RO-ABBVIE-18K-135-2501372-00

PATIENT
  Age: 66 Year
  Sex: Female

DRUGS (8)
  1. HUMIRA [Suspect]
     Active Substance: ADALIMUMAB
     Indication: COLITIS ULCERATIVE
     Route: 058
     Dates: start: 20160530
  2. MESALAZINE [Concomitant]
     Active Substance: MESALAMINE
     Indication: COLITIS ULCERATIVE
     Dosage: 1-3 TABLETS/DAY
     Route: 048
  3. BISOTENS [Concomitant]
     Indication: HYPERTENSION
     Route: 048
     Dates: end: 20180924
  4. TENAXUM [Concomitant]
     Active Substance: RILMENIDINE
     Indication: HYPERTENSION
     Route: 048
  5. NICERGOLINE [Concomitant]
     Active Substance: NICERGOLINE
     Indication: HYPERTENSION
     Route: 048
  6. PRESTARIUM [Concomitant]
     Active Substance: PERINDOPRIL
     Indication: HYPERTENSION
     Route: 048
     Dates: end: 20180924
  7. NITROMINT [Concomitant]
     Active Substance: NITROGLYCERIN
     Indication: HYPERTENSION
     Route: 048
     Dates: end: 20180924
  8. ATORIS [Concomitant]
     Active Substance: ATORVASTATIN CALCIUM
     Indication: HYPERTENSION
     Route: 048
     Dates: end: 20180924

REACTIONS (11)
  - Rash macular [Recovering/Resolving]
  - Blood pressure fluctuation [Not Recovered/Not Resolved]
  - Dizziness [Not Recovered/Not Resolved]
  - Blood pressure decreased [Not Recovered/Not Resolved]
  - Haemorrhage [Recovering/Resolving]
  - Diarrhoea [Recovered/Resolved]
  - Hepatic pain [Recovering/Resolving]
  - Gastrointestinal sounds abnormal [Recovering/Resolving]
  - Eye disorder [Recovering/Resolving]
  - Platelet count decreased [Not Recovered/Not Resolved]
  - Arthralgia [Recovering/Resolving]

NARRATIVE: CASE EVENT DATE: 201809
